FAERS Safety Report 7134523-1 (Version None)
Quarter: 2010Q4

REPORT INFORMATION
  Report Type: 
  Country: None (occurrence: None)
  Receive Date: 20101130
  Receipt Date: 20101130
  Transmission Date: 20110411
  Serious: Yes (Other)
  Sender: FDA-Public Use
  Company Number: None

PATIENT
  Age: 61 Year
  Sex: Female
  Weight: 58.514 kg

DRUGS (2)
  1. FOSAMAX [Suspect]
     Indication: OSTEOPOROSIS POSTMENOPAUSAL
     Dosage: 70 MG PO Q WEEK
     Route: 048
     Dates: start: 20000101, end: 20090701
  2. RECLAST [Suspect]
     Indication: OSTEOPOROSIS POSTMENOPAUSAL
     Dosage: 5 MG IV INFUSION Q YEAR ANNUALLY IV (ONCE)
     Route: 042
     Dates: start: 20090829, end: 20090829

REACTIONS (2)
  - FEMUR FRACTURE [None]
  - WRIST FRACTURE [None]
